FAERS Safety Report 24689073 (Version 1)
Quarter: 2024Q4

REPORT INFORMATION
  Report Type: Report from Study
  Country: US (occurrence: US)
  Receive Date: 20241203
  Receipt Date: 20241203
  Transmission Date: 20250114
  Serious: Yes (Hospitalization, Other)
  Sender: ACADIA PHARMACEUTICALS
  Company Number: US-ACADIA PHARMACEUTICALS INC.-ACA-2024-PIM-007716

PATIENT
  Age: 74 Year
  Sex: Male

DRUGS (10)
  1. NUPLAZID [Suspect]
     Active Substance: PIMAVANSERIN TARTRATE
     Indication: Parkinson^s disease
     Dosage: 34 MILLIGRAM, QD
     Route: 048
     Dates: start: 202409
  2. MEGESTROL ACETATE [Concomitant]
     Active Substance: MEGESTROL ACETATE
  3. VITAMIN C [Concomitant]
     Active Substance: ASCORBIC ACID
  4. OLMESARTAN MEDOXOMIL [Concomitant]
     Active Substance: OLMESARTAN MEDOXOMIL
  5. ROSUVASTATIN CALCIUM [Concomitant]
     Active Substance: ROSUVASTATIN CALCIUM
  6. FUROSEMIDE [Concomitant]
     Active Substance: FUROSEMIDE
  7. CARBIDOPA\LEVODOPA [Concomitant]
     Active Substance: CARBIDOPA\LEVODOPA
  8. GEMTESA [Concomitant]
     Active Substance: VIBEGRON
  9. VITAMIN B12 [Concomitant]
     Active Substance: CYANOCOBALAMIN
  10. FOLIC ACID\IRON [Concomitant]
     Active Substance: FOLIC ACID\IRON

REACTIONS (9)
  - Hip fracture [Not Recovered/Not Resolved]
  - Hip surgery [Not Recovered/Not Resolved]
  - Hypophagia [Not Recovered/Not Resolved]
  - Dehydration [Not Recovered/Not Resolved]
  - Urinary tract infection [Not Recovered/Not Resolved]
  - Decubitus ulcer [Not Recovered/Not Resolved]
  - Transfusion [Not Recovered/Not Resolved]
  - Gastrointestinal tube insertion [Not Recovered/Not Resolved]
  - Fall [Not Recovered/Not Resolved]

NARRATIVE: CASE EVENT DATE: 20240901
